FAERS Safety Report 10018117 (Version 2)
Quarter: 2014Q1

REPORT INFORMATION
  Report Type: Spontaneous
  Country: US (occurrence: US)
  Receive Date: 20140318
  Receipt Date: 20140318
  Transmission Date: 20141002
  Serious: Yes (Hospitalization)
  Sender: FDA-Public Use
  Company Number: US-BRISTOL-MYERS SQUIBB COMPANY-18989145

PATIENT
  Age: 68 Year
  Sex: Male
  Weight: 126.98 kg

DRUGS (4)
  1. ERBITUX [Suspect]
     Indication: COLON CANCER
     Dosage: LAST DOSE WAS ON 20MAY ?DRUG INTERRUPTED ON 28MAY?VIAL
     Dates: start: 20130107
  2. ACETAMINOPHEN [Suspect]
     Route: 048
  3. DEXAMETHASONE [Suspect]
     Route: 042
  4. DIPHENHYDRAMINE [Suspect]
     Dosage: 1 DF:25 UNIT NOS.

REACTIONS (2)
  - Device related infection [Unknown]
  - Bacteraemia [Unknown]
